FAERS Safety Report 8405306-7 (Version None)
Quarter: 2012Q2

REPORT INFORMATION
  Report Type: 
  Country: None (occurrence: None)
  Receive Date: 20120604
  Receipt Date: 20120524
  Transmission Date: 20120825
  Serious: Yes (Other)
  Sender: FDA-Public Use
  Company Number: JP-AMGEN-JPNSP2012033713

PATIENT
  Sex: Female

DRUGS (2)
  1. ENBREL [Suspect]
     Indication: PRODUCT USED FOR UNKNOWN INDICATION
     Dosage: UNK, 2X/WEEK
  2. INSULIN [Concomitant]
     Dosage: UNK

REACTIONS (4)
  - ARTHROPATHY [None]
  - PAIN [None]
  - INJECTION SITE PAIN [None]
  - ASTHENIA [None]
